FAERS Safety Report 14088416 (Version 8)
Quarter: 2018Q1

REPORT INFORMATION
  Report Type: Spontaneous
  Country: US (occurrence: US)
  Receive Date: 20171013
  Receipt Date: 20180108
  Transmission Date: 20180508
  Serious: No
  Sender: FDA-Public Use
  Company Number: US-ACTELION-A-NJ2017-159323

PATIENT
  Age: 45 Year
  Sex: Female

DRUGS (12)
  1. VELETRI [Suspect]
     Active Substance: EPOPROSTENOL
     Dosage: 1.5 MG, UNK
     Route: 042
  2. AMBRISENTAN [Suspect]
     Active Substance: AMBRISENTAN
     Dosage: 5 MG, QD
     Route: 065
     Dates: start: 20171004
  3. VELETRI [Suspect]
     Active Substance: EPOPROSTENOL
     Dosage: 75 ML/DAY, QD
     Route: 042
  4. VELETRI [Suspect]
     Active Substance: EPOPROSTENOL
     Dosage: 30 NG/KG, PER MIN
     Route: 042
  5. VELETRI [Suspect]
     Active Substance: EPOPROSTENOL
     Dosage: UNK
     Route: 042
     Dates: start: 20170823
  6. SILDENAFIL. [Suspect]
     Active Substance: SILDENAFIL
     Indication: PRODUCT USED FOR UNKNOWN INDICATION
     Dosage: 20 MG, TID
     Route: 065
     Dates: start: 201710
  7. UPTRAVI [Suspect]
     Active Substance: SELEXIPAG
     Indication: PULMONARY ARTERIAL HYPERTENSION
     Dosage: UNK
     Route: 048
  8. AMBRISENTAN [Suspect]
     Active Substance: AMBRISENTAN
     Indication: PULMONARY ARTERIAL HYPERTENSION
     Dosage: 10 MG, QD
     Route: 065
     Dates: start: 20170719
  9. WARFARIN [Concomitant]
     Active Substance: WARFARIN
  10. TADALAFIL [Concomitant]
     Active Substance: TADALAFIL
  11. VELETRI [Suspect]
     Active Substance: EPOPROSTENOL
     Indication: PULMONARY ARTERIAL HYPERTENSION
     Dosage: 16 NG/KG, CONT INFUS
     Route: 042
     Dates: start: 20170804
  12. VELETRI [Suspect]
     Active Substance: EPOPROSTENOL
     Dosage: 22 NG/KG, PER MIN
     Route: 042
     Dates: start: 20171001

REACTIONS (9)
  - Catheter site rash [Unknown]
  - Face oedema [Not Recovered/Not Resolved]
  - Headache [Unknown]
  - Flushing [Unknown]
  - Swelling face [Recovering/Resolving]
  - Pain in extremity [Unknown]
  - Pain in jaw [Unknown]
  - Nasal congestion [Not Recovered/Not Resolved]
  - Arthralgia [Unknown]

NARRATIVE: CASE EVENT DATE: 20170817
